FAERS Safety Report 5031327-0 (Version None)
Quarter: 2006Q2

REPORT INFORMATION
  Report Type: 
  Country: None (occurrence: None)
  Receive Date: 20060615
  Receipt Date: 20060614
  Transmission Date: 20061013
  Serious: Yes (Hospitalization)
  Sender: FDA-Public Use
  Company Number: 221132

PATIENT
  Age: 31 Year
  Sex: Female

DRUGS (7)
  1. HERCEPTIN [Suspect]
     Indication: BREAST CANCER
     Dosage: INTRAVENOUS
     Route: 042
     Dates: start: 20050414, end: 20051125
  2. GEMCITABINE HYDROCHLORIDE(GEMCITABINE HYDROCHLORIDE) [Suspect]
     Indication: BREAST CANCER
     Dosage: INTRAVENOUS
     Route: 042
     Dates: start: 20051014, end: 20051125
  3. KETOPROFEN [Concomitant]
  4. EFFERALGAN CODEINE (ACETAMINOPHEN, CODEINE PHOSPHATE) [Concomitant]
  5. CLONAZEPAM [Concomitant]
  6. NEURONTIN [Concomitant]
  7. CELECOXIB (CELECOXIB) [Concomitant]

REACTIONS (2)
  - DRUG HYPERSENSITIVITY [None]
  - EYE OEDEMA [None]
